FAERS Safety Report 20795646 (Version 3)
Quarter: 2022Q4

REPORT INFORMATION
  Report Type: Spontaneous
  Country: US (occurrence: US)
  Receive Date: 20220506
  Receipt Date: 20221013
  Transmission Date: 20230113
  Serious: Yes (Hospitalization, Disabling, Other)
  Sender: FDA-Public Use
  Company Number: US-009507513-2205USA000980

PATIENT
  Age: 31 Year
  Sex: Female

DRUGS (7)
  1. OLAPARIB [Suspect]
     Active Substance: OLAPARIB
     Indication: Triple negative breast cancer
     Dosage: UNK
     Route: 048
     Dates: start: 202111, end: 202202
  2. OLAPARIB [Suspect]
     Active Substance: OLAPARIB
     Dosage: UNK
     Route: 048
     Dates: start: 202203, end: 202205
  3. KEYTRUDA [Suspect]
     Active Substance: PEMBROLIZUMAB
     Indication: Triple negative breast cancer
     Dosage: 200 MILLIGRAM
     Dates: start: 20210611, end: 20220509
  4. XELODA [Suspect]
     Active Substance: CAPECITABINE
     Indication: Triple negative breast cancer
     Dosage: UNK
     Dates: start: 20220721
  5. CISPLATIN [Suspect]
     Active Substance: CISPLATIN
     Indication: Triple negative breast cancer
  6. GEMCITABINE [Suspect]
     Active Substance: GEMCITABINE
     Indication: Triple negative breast cancer
  7. CARBOPLATIN [Concomitant]
     Active Substance: CARBOPLATIN
     Indication: Triple negative breast cancer

REACTIONS (26)
  - Transfusion [Unknown]
  - COVID-19 [Unknown]
  - Malignant neoplasm progression [Unknown]
  - Breast cancer recurrent [Unknown]
  - Disability [Unknown]
  - Neutropenia [Unknown]
  - Cytopenia [Unknown]
  - Oophorectomy bilateral [Unknown]
  - Palmar-plantar erythrodysaesthesia syndrome [Unknown]
  - Laboratory test abnormal [Recovering/Resolving]
  - Gastroenteritis viral [Unknown]
  - Nasopharyngitis [Unknown]
  - Axillary mass [Unknown]
  - Cough [Not Recovered/Not Resolved]
  - Fatigue [Unknown]
  - Back pain [Unknown]
  - Depression [Unknown]
  - Dysgeusia [Unknown]
  - Eating disorder [Unknown]
  - Mucosal inflammation [Recovered/Resolved]
  - Insomnia [Unknown]
  - Vulvovaginal dryness [Unknown]
  - Anxiety [Unknown]
  - Stress [Unknown]
  - Genito-pelvic pain/penetration disorder [Unknown]
  - Frequent bowel movements [Unknown]

NARRATIVE: CASE EVENT DATE: 20211201
